FAERS Safety Report 25395016 (Version 1)
Quarter: 2025Q2

REPORT INFORMATION
  Report Type: Spontaneous
  Country: US (occurrence: US)
  Receive Date: 20250604
  Receipt Date: 20250604
  Transmission Date: 20250716
  Serious: Yes (Other)
  Sender: Kenvue
  Company Number: US-KENVUE-20250510789

PATIENT
  Sex: Female

DRUGS (1)
  1. ZYRTEC [Suspect]
     Active Substance: CETIRIZINE HYDROCHLORIDE
     Indication: Product used for unknown indication
     Route: 065

REACTIONS (7)
  - Anaphylactic shock [Unknown]
  - Adverse event [Unknown]
  - Throat tightness [Unknown]
  - Dyspnoea [Unknown]
  - Rhinitis allergic [Unknown]
  - Wheezing [Unknown]
  - Pruritus [Unknown]
